FAERS Safety Report 8611333-7 (Version None)
Quarter: 2012Q3

REPORT INFORMATION
  Report Type: 
  Country: None (occurrence: None)
  Receive Date: 20120807
  Receipt Date: 20120723
  Transmission Date: 20120928
  Serious: Yes (Other)
  Sender: FDA-Public Use
  Company Number: US-1193376

PATIENT
  Age: 90 Year
  Sex: Male
  Weight: 90.7194 kg

DRUGS (7)
  1. FOLIC ACID [Concomitant]
  2. FINASTERIDE [Concomitant]
  3. VITAMIN D [Concomitant]
  4. LATANOPROST [Suspect]
     Indication: GLAUCOMA
     Dosage: 1 GTT QD OU OPHTHALMIC
     Route: 047
  5. CLONIDINE [Concomitant]
  6. SIMVASTATIN [Concomitant]
  7. ASPIRIN [Concomitant]

REACTIONS (1)
  - BLOOD PRESSURE SYSTOLIC INCREASED [None]
